FAERS Safety Report 15127833 (Version 1)
Quarter: 2018Q3

REPORT INFORMATION
  Report Type: Report from Study
  Country: CN (occurrence: CN)
  Receive Date: 20180710
  Receipt Date: 20180710
  Transmission Date: 20181010
  Serious: Yes (Hospitalization, Other)
  Sender: FDA-Public Use
  Company Number: CN-ELI_LILLY_AND_COMPANY-CN201806007093

PATIENT
  Age: 60 Year
  Sex: Male

DRUGS (1)
  1. CETUXIMAB. [Suspect]
     Active Substance: CETUXIMAB
     Indication: RECTAL CANCER
     Dosage: 500 MG/M2 (900 MG), ONCE IN 2 WEEKS
     Route: 065
     Dates: start: 20171219

REACTIONS (5)
  - Weight decreased [Unknown]
  - Off label use [Unknown]
  - Intestinal obstruction [Recovering/Resolving]
  - Post procedural complication [Recovering/Resolving]
  - Malignant neoplasm progression [Unknown]

NARRATIVE: CASE EVENT DATE: 2018
